FAERS Safety Report 18350560 (Version 1)
Quarter: 2020Q4

REPORT INFORMATION
  Report Type: Spontaneous
  Country: FR (occurrence: FR)
  Receive Date: 20201006
  Receipt Date: 20201006
  Transmission Date: 20210114
  Serious: Yes (Hospitalization)
  Sender: FDA-Public Use
  Company Number: FR-AMERICAN REGENT INC-2020002051

PATIENT
  Age: 23 Year
  Sex: Female
  Weight: 41.6 kg

DRUGS (1)
  1. VENOFER [Suspect]
     Active Substance: IRON SUCROSE
     Indication: ANAEMIA
     Dosage: 200 MG, 1 IN 1 TOTAL
     Dates: start: 20200731, end: 20200731

REACTIONS (2)
  - Thrombophlebitis superficial [Recovering/Resolving]
  - Administration site thrombosis [Recovering/Resolving]

NARRATIVE: CASE EVENT DATE: 20200731
